FAERS Safety Report 20136430 (Version 9)
Quarter: 2022Q1

REPORT INFORMATION
  Report Type: Spontaneous
  Country: GB (occurrence: GB)
  Receive Date: 20211201
  Receipt Date: 20220330
  Transmission Date: 20220423
  Serious: Yes (Death, Life-Threatening, Hospitalization, Other)
  Sender: FDA-Public Use
  Company Number: GB-MYLANLABS-2020M1053246

PATIENT
  Age: 56 Year
  Sex: Male
  Weight: 92 kg

DRUGS (41)
  1. OMEPRAZOLE [Suspect]
     Active Substance: OMEPRAZOLE
     Indication: Product used for unknown indication
     Dosage: 12 MG, BID
     Route: 048
  2. OMEPRAZOLE [Suspect]
     Active Substance: OMEPRAZOLE
     Indication: Duodenal ulcer
     Dosage: 20 MG, BID (40MG, QD)
     Route: 048
  3. OMEPRAZOLE [Suspect]
     Active Substance: OMEPRAZOLE
     Dosage: 40 MILLIGRAM, QD, (20 MG, BID)
     Route: 048
  4. OMEPRAZOLE [Suspect]
     Active Substance: OMEPRAZOLE
     Dosage: 400 UG
     Route: 065
  5. CLOZARIL [Suspect]
     Active Substance: CLOZAPINE
     Indication: Schizophrenia
     Dosage: UNK
     Route: 048
     Dates: start: 20090403
  6. CLOZARIL [Suspect]
     Active Substance: CLOZAPINE
     Dosage: 400 MILLIGRAM
     Route: 048
     Dates: start: 20200403
  7. CLOZARIL [Suspect]
     Active Substance: CLOZAPINE
     Dosage: 8 MILLIGRAM, QD
     Dates: start: 20200521, end: 202005
  8. CLOZARIL [Suspect]
     Active Substance: CLOZAPINE
     Dosage: 20 MILLIGRAM, BID
  9. DEXAMETHASONE [Suspect]
     Active Substance: DEXAMETHASONE
     Indication: Radiotherapy
     Dosage: 2 MILLIGRAM, QD
     Route: 048
     Dates: start: 202005, end: 20200528
  10. DEXAMETHASONE [Suspect]
     Active Substance: DEXAMETHASONE
     Dosage: 8 MILLIGRAM, ONCE A DAY
     Route: 048
     Dates: start: 202005, end: 20200528
  11. DEXAMETHASONE [Suspect]
     Active Substance: DEXAMETHASONE
     Dosage: 8 MG, QD
     Route: 048
     Dates: start: 20200515, end: 202005
  12. DEXAMETHASONE [Suspect]
     Active Substance: DEXAMETHASONE
     Dosage: 8 MG, QD
     Route: 048
     Dates: start: 20200521, end: 202005
  13. DEXAMETHASONE [Suspect]
     Active Substance: DEXAMETHASONE
     Dosage: 8 MG, QD
     Route: 048
     Dates: start: 20200521, end: 20200528
  14. DEXAMETHASONE [Suspect]
     Active Substance: DEXAMETHASONE
     Dosage: 2 MILLIGRAM
     Route: 048
     Dates: start: 20200521, end: 20200528
  15. DEXAMETHASONE [Suspect]
     Active Substance: DEXAMETHASONE
     Dosage: 10 MG (ORAL SOLUTION)
  16. DEXAMETHASONE [Suspect]
     Active Substance: DEXAMETHASONE
     Dosage: UNK
     Dates: start: 202005
  17. FOLIC ACID [Suspect]
     Active Substance: FOLIC ACID
     Indication: Product used for unknown indication
     Dosage: 5 MG (ORAL SOLUTION)
     Route: 048
  18. FOLIC ACID [Suspect]
     Active Substance: FOLIC ACID
     Dosage: 5 MG (ORAL SOLUTION)
     Route: 048
  19. SIMVASTATIN [Suspect]
     Active Substance: SIMVASTATIN
     Indication: Product used for unknown indication
     Dosage: 20 MG
     Route: 048
  20. TAMSULOSIN HYDROCHLORIDE [Suspect]
     Active Substance: TAMSULOSIN HYDROCHLORIDE
     Indication: Product used for unknown indication
     Dosage: 400 UG
     Route: 065
  21. DIPHENYLGUANIDINE [Suspect]
     Active Substance: DIPHENYLGUANIDINE
     Indication: Depression
     Dosage: 750 MILLIGRAM, ONCE A DAY
  22. CARBAMAZEPINE [Suspect]
     Active Substance: CARBAMAZEPINE
  23. CARBOCYSTEINE [Suspect]
     Active Substance: CARBOCYSTEINE
     Dosage: 750 MG, DAILY, QD
     Dates: start: 20100917
  24. CIPROFLOXACIN [Suspect]
     Active Substance: CIPROFLOXACIN
     Dosage: 1000 MILLIGRAM
     Dates: start: 20100917
  25. CLOZAPINE [Suspect]
     Active Substance: CLOZAPINE
  26. ENBREL [Suspect]
     Active Substance: ETANERCEPT
     Indication: Rheumatoid arthritis
     Dosage: 50 MILLIGRAM, Q.W., WEEKLY, SOLUTION FOR INJECTION IN PRE-FILLED PEN, MYCLIC PENS
     Dates: start: 20100917
  27. GUANIDINE [Suspect]
     Active Substance: GUANIDINE
  28. IRBESARTAN [Suspect]
     Active Substance: IRBESARTAN
     Indication: Abdominal discomfort
     Dosage: 150 GRAM, QD
     Dates: start: 20100912
  29. IRBESARTAN [Suspect]
     Active Substance: IRBESARTAN
     Dosage: 150 GRAM, QD
     Dates: start: 20100917
  30. METHOTREXATE SODIUM [Suspect]
     Active Substance: METHOTREXATE SODIUM
     Indication: Rheumatoid arthritis
     Dosage: 17.5MG
     Dates: start: 20100917
  31. PHYLLOCONTIN [Suspect]
     Active Substance: AMINOPHYLLINE
     Indication: Product used for unknown indication
     Dosage: 400 MG, DAILY, QD
     Dates: start: 20100917
  32. VENLAFAXINE HYDROCHLORIDE [Suspect]
     Active Substance: VENLAFAXINE HYDROCHLORIDE
     Indication: Depression
     Dosage: 225 MG, DAILY, ONCE A DAY, PROLONGED RELEASE
  33. VENLAFAXINE HYDROCHLORIDE [Suspect]
     Active Substance: VENLAFAXINE HYDROCHLORIDE
     Indication: Rheumatoid arthritis
  34. DITIOCARB ZINC [Suspect]
     Active Substance: DITIOCARB ZINC
     Indication: Depression
     Dosage: 750 MILLIGRAM, QD
  35. BENDROFLUMETHIAZIDE [Concomitant]
     Active Substance: BENDROFLUMETHIAZIDE
     Indication: Pituitary tumour
  36. CABERGOLINE [Concomitant]
     Active Substance: CABERGOLINE
  37. CETIRIZINE [Concomitant]
     Active Substance: CETIRIZINE HYDROCHLORIDE
     Indication: Abdominal discomfort
  38. EZETIMIBE [Concomitant]
     Active Substance: EZETIMIBE
  39. FOLIC ACID [Concomitant]
     Active Substance: FOLIC ACID
  40. LEVOTHYROXINE [Concomitant]
     Active Substance: LEVOTHYROXINE
  41. ORUVAIL [Concomitant]
     Active Substance: KETOPROFEN
     Indication: Empty sella syndrome
     Dosage: UNK
     Route: 065

REACTIONS (19)
  - Radiation inflammation [Fatal]
  - Lung neoplasm malignant [Fatal]
  - Schizophrenia [Fatal]
  - COVID-19 [Fatal]
  - Condition aggravated [Fatal]
  - Inflammation [Fatal]
  - Off label use [Unknown]
  - Overdose [Unknown]
  - Abdominal discomfort [Fatal]
  - Pulmonary pain [Fatal]
  - Knee arthroplasty [Fatal]
  - Arthropathy [Fatal]
  - Lower respiratory tract infection [Fatal]
  - Rash [Fatal]
  - Arthropathy [Fatal]
  - Overdose [Fatal]
  - Product dose omission issue [Fatal]
  - Drug abuse [Fatal]
  - Intentional product misuse [Fatal]

NARRATIVE: CASE EVENT DATE: 20200401
